FAERS Safety Report 6642001-9 (Version None)
Quarter: 2010Q1

REPORT INFORMATION
  Report Type: 
  Country: None (occurrence: None)
  Receive Date: 20100319
  Receipt Date: 20100310
  Transmission Date: 20100710
  Serious: Yes (Other)
  Sender: FDA-Public Use
  Company Number: US-JNJFOC-20100303353

PATIENT
  Sex: Female

DRUGS (7)
  1. REMICADE [Suspect]
     Indication: RHEUMATOID ARTHRITIS
     Route: 042
  2. OMEPRAZOLE [Concomitant]
  3. LEVOTHYROXINE SODIUM [Concomitant]
     Indication: HYPOTHYROIDISM
  4. METOPROLOL TARTRATE [Concomitant]
     Indication: HYPERTENSION
  5. PRAMIPEXOLE DIHYDROCHLORIDE [Concomitant]
  6. LISINOPRIL [Concomitant]
     Indication: HYPERTENSION
  7. DETROL [Concomitant]
     Indication: URINARY INCONTINENCE

REACTIONS (1)
  - PERIPROSTHETIC FRACTURE [None]
